FAERS Safety Report 7827320-2 (Version None)
Quarter: 2011Q4

REPORT INFORMATION
  Report Type: 
  Country: None (occurrence: None)
  Receive Date: 20111020
  Receipt Date: 20111018
  Transmission Date: 20120403
  Serious: Yes (Life-Threatening, Other)
  Sender: FDA-Public Use
  Company Number: GB-PFIZER INC-2011155459

PATIENT
  Age: 86 Year
  Sex: Male
  Weight: 76.2 kg

DRUGS (2)
  1. BISOPROLOL [Concomitant]
     Indication: HYPERTENSION
     Dosage: 2.5 MG, DAILY
     Route: 048
     Dates: start: 20090101
  2. AMLODIPINE BESYLATE [Suspect]
     Indication: HYPERTENSION
     Dosage: 5 MG, UNK
     Route: 048
     Dates: start: 20100301, end: 20110301

REACTIONS (6)
  - AORTIC STENOSIS [None]
  - HEART RATE IRREGULAR [None]
  - CARDIAC MURMUR [None]
  - TRICUSPID VALVE CALCIFICATION [None]
  - EXTRASYSTOLES [None]
  - LEFT VENTRICULAR HYPERTROPHY [None]
